FAERS Safety Report 13703099 (Version 2)
Quarter: 2017Q3

REPORT INFORMATION
  Report Type: Spontaneous
  Country: FR (occurrence: FR)
  Receive Date: 20170629
  Receipt Date: 20170911
  Transmission Date: 20171127
  Serious: No
  Sender: FDA-Public Use
  Company Number: FR-BAYER-2017-121908

PATIENT
  Age: 39 Year
  Sex: Female

DRUGS (1)
  1. MIRENA [Suspect]
     Active Substance: LEVONORGESTREL
     Dosage: 20 MCG/24HR, CONT
     Route: 015
     Dates: start: 20170126, end: 20170622

REACTIONS (8)
  - Tremor [None]
  - Anxiety [None]
  - Paraesthesia [None]
  - Skin discolouration [None]
  - Depression [None]
  - Malaise [None]
  - Muscle spasms [None]
  - Heart rate increased [None]

NARRATIVE: CASE EVENT DATE: 201703
